FAERS Safety Report 12084520 (Version 1)
Quarter: 2016Q1

REPORT INFORMATION
  Report Type: Spontaneous
  Country: CA (occurrence: CA)
  Receive Date: 20160217
  Receipt Date: 20160217
  Transmission Date: 20160526
  Serious: Yes (Other)
  Sender: FDA-Public Use
  Company Number: CA-PFIZER INC-2016091807

PATIENT
  Sex: Male

DRUGS (1)
  1. CHILDREN^S ADVIL FEVER FROM COLDS OR FLU [Suspect]
     Active Substance: IBUPROFEN
     Indication: MALAISE
     Dosage: UNK

REACTIONS (4)
  - Condition aggravated [Unknown]
  - Product quality issue [Unknown]
  - Drug administration error [None]
  - Pneumonia [Unknown]
